FAERS Safety Report 4916225-2 (Version None)
Quarter: 2006Q1

REPORT INFORMATION
  Report Type: 
  Country: None (occurrence: None)
  Receive Date: 20060217
  Receipt Date: 20050919
  Transmission Date: 20060701
  Serious: Yes (Hospitalization, Disabling, Other)
  Sender: FDA-Public Use
  Company Number: US-MERCK-0509USA02702

PATIENT
  Age: 32 Year
  Sex: Male
  Weight: 236 kg

DRUGS (2)
  1. VIOXX [Suspect]
     Indication: CONTUSION
     Route: 048
     Dates: start: 20030601, end: 20030701
  2. NORVASC [Concomitant]
     Route: 065

REACTIONS (15)
  - ARTHRALGIA [None]
  - CARDIAC FAILURE [None]
  - CEREBROVASCULAR ACCIDENT [None]
  - CHEST PAIN [None]
  - CONTUSION [None]
  - DIABETES MELLITUS [None]
  - HEPATOCELLULAR DAMAGE [None]
  - HYPERTENSION [None]
  - MUSCULOSKELETAL DISCOMFORT [None]
  - MYOCARDIAL INFARCTION [None]
  - PAIN IN EXTREMITY [None]
  - PNEUMONIA [None]
  - RENAL DISORDER [None]
  - THROMBOSIS [None]
  - ULCER [None]
